FAERS Safety Report 5893027-4 (Version None)
Quarter: 2008Q3

REPORT INFORMATION
  Report Type: 
  Country: None (occurrence: None)
  Receive Date: 20080923
  Receipt Date: 20070410
  Transmission Date: 20090109
  Serious: No
  Sender: FDA-Public Use
  Company Number: US-ASTRAZENECA-2007UW02014

PATIENT
  Age: 473 Month
  Sex: Female
  Weight: 84.5 kg

DRUGS (5)
  1. SEROQUEL [Suspect]
     Indication: MAJOR DEPRESSION
     Dosage: 100-500MG
     Route: 048
     Dates: start: 20040505, end: 20050913
  2. ABILIFY [Concomitant]
     Dates: start: 20050929
  3. RISPERDAL (REISPERIDONE) [Concomitant]
  4. ZYPREXA/SYMBYAX (OLANZAPINE) [Concomitant]
  5. DEPAKOTE [Concomitant]
     Dosage: 500-1500MG
     Dates: start: 20040501

REACTIONS (11)
  - ABSCESS [None]
  - ARTHRALGIA [None]
  - FUNGAL INFECTION [None]
  - HYPERLIPIDAEMIA [None]
  - MUSCULAR WEAKNESS [None]
  - NAUSEA [None]
  - OEDEMA GENITAL [None]
  - OROPHARYNGEAL PAIN [None]
  - PAIN IN EXTREMITY [None]
  - RESPIRATORY TRACT INFECTION [None]
  - TYPE 1 DIABETES MELLITUS [None]
